FAERS Safety Report 4361327-5 (Version None)
Quarter: 2004Q2

REPORT INFORMATION
  Report Type: 
  Country: None (occurrence: None)
  Receive Date: 20040520
  Receipt Date: 20040517
  Transmission Date: 20050107
  Serious: Yes (Hospitalization, Other)
  Sender: FDA-Public Use
  Company Number: LB-MERCK-0405USA01158

PATIENT
  Age: 55 Year
  Sex: Male

DRUGS (11)
  1. [THERAPY UNSPECIFIED] [Concomitant]
     Route: 065
  2. AMLODIPINE [Concomitant]
     Route: 065
  3. ASPIRIN [Concomitant]
     Route: 065
  4. CONCOR [Concomitant]
     Route: 065
  5. CAPOTEN [Concomitant]
     Route: 065
  6. PLAVIX [Concomitant]
     Route: 065
  7. LASIX [Concomitant]
     Route: 065
  8. VISTARIL [Concomitant]
     Route: 065
  9. GLUCOPHAGE [Concomitant]
     Route: 065
  10. ZOCOR [Suspect]
     Route: 048
  11. ALDACTONE [Concomitant]
     Route: 065

REACTIONS (1)
  - PULMONARY OEDEMA [None]
